FAERS Safety Report 9241699 (Version 1)
Quarter: 2013Q2

REPORT INFORMATION
  Report Type: Report from Study
  Country: US (occurrence: US)
  Receive Date: 20130419
  Receipt Date: 20130419
  Transmission Date: 20140414
  Serious: Yes (Other)
  Sender: FDA-Public Use
  Company Number: US-JNJFOC-20130407322

PATIENT
  Age: 70 Year
  Sex: Male
  Weight: 80.29 kg

DRUGS (7)
  1. XARELTO [Suspect]
     Indication: CEREBROVASCULAR ACCIDENT PROPHYLAXIS
     Route: 048
     Dates: start: 201304
  2. XARELTO [Suspect]
     Indication: ATRIAL FIBRILLATION
     Route: 048
     Dates: start: 201304
  3. LIPITOR [Concomitant]
     Indication: BLOOD CHOLESTEROL INCREASED
  4. DIOVAN [Concomitant]
     Indication: HYPERTENSION
  5. METOPROLOL [Concomitant]
     Indication: ATRIAL FIBRILLATION
  6. BABY ASPIRIN [Concomitant]
  7. ARITMAL [Concomitant]
     Indication: ATRIAL FIBRILLATION

REACTIONS (2)
  - Gingival bleeding [Recovered/Resolved]
  - Faeces discoloured [Recovered/Resolved]
